FAERS Safety Report 8248200-7 (Version None)
Quarter: 2012Q1

REPORT INFORMATION
  Report Type: 
  Country: None (occurrence: None)
  Receive Date: 20120330
  Receipt Date: 20120315
  Transmission Date: 20120608
  Serious: Yes (Hospitalization, Other)
  Sender: FDA-Public Use
  Company Number: CHPA2012US005279

PATIENT
  Sex: Female

DRUGS (1)
  1. EXCEDRIN TENSION HEADACHE CAPLETS [Suspect]
     Indication: MUSCLE TIGHTNESS
     Dosage: 4 DF, USUALLY AT A TIME
     Route: 048

REACTIONS (5)
  - NEOPLASM MALIGNANT [None]
  - DIARRHOEA [None]
  - ABDOMINAL PAIN UPPER [None]
  - INCORRECT DOSE ADMINISTERED [None]
  - VOMITING [None]
